FAERS Safety Report 9939231 (Version 1)
Quarter: 2014Q1

REPORT INFORMATION
  Report Type: Report from Study
  Country: US (occurrence: US)
  Receive Date: 20140303
  Receipt Date: 20140303
  Transmission Date: 20141002
  Serious: No
  Sender: FDA-Public Use
  Company Number: US-ABBVIE-13P-163-1034702-00

PATIENT
  Age: 57 Year
  Sex: Male

DRUGS (5)
  1. HUMIRA [Suspect]
     Indication: PSORIATIC ARTHROPATHY
     Dates: start: 2008
  2. CRESTOR [Suspect]
     Indication: BLOOD CHOLESTEROL INCREASED
  3. TOPROL [Suspect]
     Indication: PRODUCT USED FOR UNKNOWN INDICATION
  4. ALLOPURINOL [Concomitant]
     Indication: NEPHROLITHIASIS
  5. VIT D3 [Concomitant]
     Indication: VITAMIN D DECREASED

REACTIONS (6)
  - Vascular calcification [Unknown]
  - Paraesthesia [Recovering/Resolving]
  - Blood cholesterol increased [Unknown]
  - Tinnitus [Not Recovered/Not Resolved]
  - Paraesthesia [Recovered/Resolved]
  - Micturition urgency [Unknown]
